FAERS Safety Report 19481917 (Version 1)
Quarter: 2021Q2

REPORT INFORMATION
  Report Type: Spontaneous
  Country: US (occurrence: US)
  Receive Date: 20210630
  Receipt Date: 20210630
  Transmission Date: 20210717
  Serious: No
  Sender: FDA-Public Use
  Company Number: None

PATIENT
  Age: 77 Year
  Sex: Female

DRUGS (2)
  1. ELIQUIS [Suspect]
     Active Substance: APIXABAN
  2. XARELTO [Suspect]
     Active Substance: RIVAROXABAN

REACTIONS (4)
  - Dyspnoea [None]
  - Swelling face [None]
  - Chest discomfort [None]
  - Oedema peripheral [None]
